FAERS Safety Report 8830923 (Version 3)
Quarter: 2013Q2

REPORT INFORMATION
  Report Type: Spontaneous
  Country: US (occurrence: US)
  Receive Date: 20121009
  Receipt Date: 20130618
  Transmission Date: 20140414
  Serious: Yes (Hospitalization, Other)
  Sender: FDA-Public Use
  Company Number: US-009507513-2011SP059164

PATIENT
  Sex: Female
  Weight: 86.17 kg

DRUGS (6)
  1. NUVARING [Suspect]
     Indication: CONTRACEPTION
     Dosage: UNK
     Route: 067
     Dates: start: 200903, end: 201001
  2. NUVARING [Suspect]
     Dosage: UNK, QM
     Route: 067
     Dates: start: 200704
  3. EFFEXOR XR [Concomitant]
     Indication: DEPRESSION
     Dosage: 37.5 MG, UNK
     Dates: start: 20061212, end: 20061219
  4. EFFEXOR XR [Concomitant]
     Dosage: 75 MG, QD
     Dates: start: 20061220, end: 20070112
  5. EFFEXOR XR [Concomitant]
     Dosage: 75 MG PLUS 37.5 MG, QD
     Dates: start: 20070113, end: 20070127
  6. EFFEXOR XR [Concomitant]
     Dosage: 150 MG, QD
     Dates: start: 20070128

REACTIONS (26)
  - Pulmonary embolism [Recovering/Resolving]
  - Chest pain [Unknown]
  - Thyroid therapy [Unknown]
  - Incorrect drug administration duration [Unknown]
  - Cervical dysplasia [Unknown]
  - Headache [Unknown]
  - Ovarian cyst [Unknown]
  - Musculoskeletal chest pain [Unknown]
  - Oropharyngeal pain [Unknown]
  - Headache [Unknown]
  - Bronchitis [Unknown]
  - Abdominal pain [Unknown]
  - Road traffic accident [Unknown]
  - Back pain [Unknown]
  - Rhinitis allergic [Unknown]
  - Therapeutic response decreased [Unknown]
  - Depression [Unknown]
  - Hormone level abnormal [Unknown]
  - Road traffic accident [Unknown]
  - Post-traumatic headache [Unknown]
  - Upper respiratory tract infection [Unknown]
  - Sinusitis [Unknown]
  - Bronchitis [Unknown]
  - Anxiety [Unknown]
  - Influenza [Unknown]
  - Tension headache [Unknown]
